FAERS Safety Report 10073244 (Version 1)
Quarter: 2014Q2

REPORT INFORMATION
  Report Type: Spontaneous
  Country: BR (occurrence: BR)
  Receive Date: 20140411
  Receipt Date: 20140411
  Transmission Date: 20141212
  Serious: Yes (Hospitalization)
  Sender: FDA-Public Use
  Company Number: BR-GLAXOSMITHKLINE-A1068761A

PATIENT
  Age: 5 Year
  Sex: Male
  Weight: 20 kg

DRUGS (1)
  1. ZINNAT [Suspect]
     Indication: PNEUMONIA
     Dosage: 7ML TWICE PER DAY
     Route: 048
     Dates: start: 20140326, end: 20140326

REACTIONS (7)
  - Pain [Recovered/Resolved]
  - Movement disorder [Recovered/Resolved]
  - Vomiting [Recovered/Resolved]
  - Cough [Recovered/Resolved]
  - Dyspnoea [Recovered/Resolved]
  - Abdominal pain [Recovered/Resolved]
  - Lung disorder [Unknown]
